FAERS Safety Report 19304574 (Version 2)
Quarter: 2021Q2

REPORT INFORMATION
  Report Type: Spontaneous
  Country: CN (occurrence: CN)
  Receive Date: 20210525
  Receipt Date: 20210528
  Transmission Date: 20210717
  Serious: Yes (Other)
  Sender: FDA-Public Use
  Company Number: CN-ASTRAZENECA-2021A448318

PATIENT
  Sex: Female

DRUGS (6)
  1. LEVETIRACETAM. [Concomitant]
     Active Substance: LEVETIRACETAM
  2. TOPIRAMATE. [Concomitant]
     Active Substance: TOPIRAMATE
  3. TAGRISSO [Suspect]
     Active Substance: OSIMERTINIB
     Indication: LUNG NEOPLASM MALIGNANT
     Route: 048
     Dates: start: 20210513, end: 20210515
  4. MECOBALAMIN [Concomitant]
     Active Substance: METHYLCOBALAMIN
  5. CHLOROPHENOL OXYCODONE [Concomitant]
  6. TAGRISSO [Suspect]
     Active Substance: OSIMERTINIB
     Indication: LUNG NEOPLASM MALIGNANT
     Route: 048
     Dates: start: 20210516

REACTIONS (4)
  - Pancreatic carcinoma [Unknown]
  - Colon cancer [Unknown]
  - Gastric cancer [Unknown]
  - Diarrhoea [Recovered/Resolved]
